FAERS Safety Report 8425938-X (Version None)
Quarter: 2012Q2

REPORT INFORMATION
  Report Type: 
  Country: None (occurrence: None)
  Receive Date: 20120611
  Receipt Date: 20120601
  Transmission Date: 20120825
  Serious: Yes (Hospitalization, Other)
  Sender: FDA-Public Use
  Company Number: US-BAYER-2011-047591

PATIENT
  Age: 23 Year
  Sex: Female
  Weight: 109 kg

DRUGS (10)
  1. VICODIN [Concomitant]
     Indication: PAIN
  2. COLACE [Concomitant]
  3. LESSINA [Concomitant]
     Dosage: UNK
     Dates: start: 20080722, end: 20080101
  4. LEVOTHYROXINE SODIUM [Concomitant]
     Indication: THYROID DISORDER
     Dosage: UNK
     Route: 048
     Dates: start: 20080701
  5. DROSPIRENONE AND ETHINYL ESTRADIOL [Suspect]
     Indication: CONTRACEPTION
     Dosage: UNK
     Route: 048
     Dates: start: 20080101, end: 20080101
  6. HYDROCODONE [Concomitant]
     Dosage: UNK
     Route: 048
     Dates: start: 20091008
  7. YAZ [Suspect]
     Indication: CONTRACEPTION
     Dosage: UNK
     Route: 048
     Dates: start: 20080101, end: 20080101
  8. YASMIN [Suspect]
     Indication: CONTRACEPTION
     Dosage: UNK
     Route: 048
     Dates: start: 20040101, end: 20050101
  9. LEVOTHROID [Concomitant]
  10. ANALGESICS [Concomitant]
     Indication: PAIN
     Dosage: UNK
     Dates: start: 20090726

REACTIONS (11)
  - PELVIC INFLAMMATORY DISEASE [None]
  - ANXIETY [None]
  - WEIGHT INCREASED [None]
  - CHOLECYSTITIS CHRONIC [None]
  - PANCREATIC DISORDER [None]
  - MIGRAINE [None]
  - PANCREATITIS ACUTE [None]
  - INJURY [None]
  - GALLBLADDER DISORDER [None]
  - PAIN [None]
  - EMOTIONAL DISTRESS [None]
